FAERS Safety Report 15799045 (Version 1)
Quarter: 2019Q1

REPORT INFORMATION
  Report Type: Report from Study
  Country: US (occurrence: US)
  Receive Date: 20190108
  Receipt Date: 20190108
  Transmission Date: 20190417
  Serious: Yes (Hospitalization)
  Sender: FDA-Public Use
  Company Number: US-JNJFOC-20190107182

PATIENT
  Sex: Male

DRUGS (26)
  1. CRANBERRY. [Concomitant]
     Active Substance: CRANBERRY
  2. FINASTERIDE. [Concomitant]
     Active Substance: FINASTERIDE
  3. SYNTHROID [Concomitant]
     Active Substance: LEVOTHYROXINE SODIUM
  4. LOSARTAN POTASSIUM. [Concomitant]
     Active Substance: LOSARTAN POTASSIUM
  5. COMPAZINE [Concomitant]
     Active Substance: PROCHLORPERAZINE MALEATE
  6. SINEMET [Concomitant]
     Active Substance: CARBIDOPA\LEVODOPA
     Dosage: 25-100MG
  7. IMBRUVICA [Suspect]
     Active Substance: IBRUTINIB
     Indication: CHRONIC LYMPHOCYTIC LEUKAEMIA
     Route: 048
     Dates: start: 20180414
  8. LANTUS [Concomitant]
     Active Substance: INSULIN GLARGINE
     Dosage: 100 U/L, UNK
  9. TESSALON [Concomitant]
     Active Substance: BENZONATATE
  10. VITAMIN D3 [Concomitant]
     Active Substance: CHOLECALCIFEROL
     Dosage: 2000 UNIT, UNK
  11. DEXTROMETHORPHAN HYDROBROMIDE. [Concomitant]
     Active Substance: DEXTROMETHORPHAN HYDROBROMIDE
  12. PROTONIX [Concomitant]
     Active Substance: PANTOPRAZOLE SODIUM
  13. VITAMIN B COMPLEX [Concomitant]
     Active Substance: CYANOCOBALAMIN\DEXPANTHENOL\NIACINAMIDE\PYRIDOXINE HYDROCHLORIDE\RIBOFLAVIN 5^-PHOSPHATE SODIUM\THIAMINE HYDROCHLORIDE\VITAMIN B COMPLEX
  14. COREG [Concomitant]
     Active Substance: CARVEDILOL
  15. FOLIC ACID. [Concomitant]
     Active Substance: FOLIC ACID
  16. PROGRAF [Concomitant]
     Active Substance: TACROLIMUS\TACROLIMUS ANHYDROUS
  17. NOVOLOG [Concomitant]
     Active Substance: INSULIN ASPART
     Dosage: 100 U/L, UNK
  18. LYRICA [Concomitant]
     Active Substance: PREGABALIN
  19. BACTRIM DS [Concomitant]
     Active Substance: SULFAMETHOXAZOLE\TRIMETHOPRIM
     Dosage: 800-160MG
  20. LIPITOR [Concomitant]
     Active Substance: ATORVASTATIN CALCIUM
  21. PREDNISONE. [Concomitant]
     Active Substance: PREDNISONE
  22. ZYRTEC [Concomitant]
     Active Substance: CETIRIZINE HYDROCHLORIDE
     Route: 065
  23. CARDURA [Concomitant]
     Active Substance: DOXAZOSIN MESYLATE
  24. CYMBALTA [Concomitant]
     Active Substance: DULOXETINE HYDROCHLORIDE
  25. RAPAMUNE [Concomitant]
     Active Substance: SIROLIMUS
  26. TORSEMIDE. [Concomitant]
     Active Substance: TORSEMIDE

REACTIONS (1)
  - Pulmonary oedema [Unknown]
